FAERS Safety Report 23051895 (Version 2)
Quarter: 2023Q4

REPORT INFORMATION
  Report Type: Spontaneous
  Country: US (occurrence: US)
  Receive Date: 20231010
  Receipt Date: 20231026
  Transmission Date: 20240110
  Serious: No
  Sender: FDA-Public Use
  Company Number: US-Calliditas-2023CAL01321

PATIENT
  Age: 38 Year
  Sex: Male
  Weight: 101.2 kg

DRUGS (1)
  1. TARPEYO [Suspect]
     Active Substance: BUDESONIDE
     Indication: IgA nephropathy
     Dosage: 16 MG (4 MG CAPSULES) ONCE DAILY
     Route: 048
     Dates: start: 20230428

REACTIONS (3)
  - Swelling [Unknown]
  - Asthenia [Unknown]
  - Weight increased [Unknown]
